FAERS Safety Report 9173521 (Version 1)
Quarter: 2013Q1

REPORT INFORMATION
  Report Type: Spontaneous
  Country: JP (occurrence: None)
  Receive Date: 20130315
  Receipt Date: 20130315
  Transmission Date: 20140127
  Serious: Yes (Other)
  Sender: FDA-Public Use
  Company Number: 220737

PATIENT
  Age: 56 Year
  Sex: Male

DRUGS (3)
  1. DAIVONEX [Suspect]
     Indication: PSORIASIS
     Dosage: 3-5G/DAY FOR 8 YEARS
  2. CLOBETASOL PROPIONATE [Suspect]
     Indication: PSORIASIS
     Dosage: 4-6 G/DAY FOR12 YEARS
  3. CYCLOSPORIN (CICLOSPORIN) [Concomitant]

REACTIONS (5)
  - Osteochondrosis [None]
  - Blood cholesterol increased [None]
  - Blood triglycerides increased [None]
  - Adrenal suppression [None]
  - Skin atrophy [None]
